FAERS Safety Report 7164785-6 (Version None)
Quarter: 2010Q4

REPORT INFORMATION
  Report Type: 
  Country: None (occurrence: None)
  Receive Date: 20101215
  Receipt Date: 20101209
  Transmission Date: 20110411
  Serious: Yes (Other)
  Sender: FDA-Public Use
  Company Number: GB-B.I. PHARMACEUTICALS,INC./RIDGEFIELD-2010-UK-01028UK

PATIENT
  Sex: Female
  Weight: 75 kg

DRUGS (4)
  1. PRADAXA [Suspect]
     Indication: PROPHYLAXIS
     Dosage: 220 MG
     Route: 048
     Dates: start: 20100816, end: 20100829
  2. ATENOLOL [Concomitant]
     Dosage: 50 NR
     Route: 048
  3. LANSOPRAZOLE [Concomitant]
     Dosage: 30 NR
     Route: 048
  4. PANADOL [Concomitant]
     Dosage: PRN
     Route: 048

REACTIONS (1)
  - DEEP VEIN THROMBOSIS [None]
